FAERS Safety Report 14284762 (Version 2)
Quarter: 2018Q1

REPORT INFORMATION
  Report Type: Spontaneous
  Country: MX (occurrence: MX)
  Receive Date: 20171214
  Receipt Date: 20180130
  Transmission Date: 20180509
  Serious: Yes (Other)
  Sender: FDA-Public Use
  Company Number: MX-ROCHE-2035883

PATIENT
  Age: 57 Year
  Sex: Female
  Weight: 59 kg

DRUGS (4)
  1. MABTHERA [Concomitant]
     Active Substance: RITUXIMAB
     Route: 065
  2. ROACTEMRA [Suspect]
     Active Substance: TOCILIZUMAB
     Indication: RHEUMATOID ARTHRITIS
     Dosage: START DATE 22/JUL/2016?CURRENTLY ONGOING
     Route: 042
  3. LEVOTIROXIN [Concomitant]
     Active Substance: LEVOTHYROXINE SODIUM
     Route: 065
  4. INFLIXIMAB [Concomitant]
     Active Substance: INFLIXIMAB
     Route: 042

REACTIONS (10)
  - Intestinal haemorrhage [Recovered/Resolved]
  - Urticaria [Recovered/Resolved]
  - Laboratory test abnormal [Not Recovered/Not Resolved]
  - Contusion [Recovered/Resolved]
  - Chest pain [Recovered/Resolved]
  - Dyspnoea [Recovered/Resolved]
  - Fatigue [Recovered/Resolved]
  - Skin warm [Recovered/Resolved]
  - Hepatitis C [Unknown]
  - Back pain [Unknown]

NARRATIVE: CASE EVENT DATE: 201602
